FAERS Safety Report 4587129-2 (Version None)
Quarter: 2005Q1

REPORT INFORMATION
  Report Type: 
  Country: None (occurrence: None)
  Receive Date: 20050218
  Receipt Date: 20050204
  Transmission Date: 20050727
  Serious: Yes (Death, Life-Threatening, Hospitalization, Other)
  Sender: FDA-Public Use
  Company Number: CASE 1999-63015

PATIENT
  Age: 75 Year
  Sex: Female

DRUGS (2)
  1. ECOTRIN [Suspect]
     Indication: TRANSIENT ISCHAEMIC ATTACK
     Dosage: 325MG PER DAY
     Route: 048
  2. INSULIN [Concomitant]

REACTIONS (6)
  - DIABETES MELLITUS [None]
  - DYSARTHRIA [None]
  - FACIAL PALSY [None]
  - FALL [None]
  - GASTROINTESTINAL HAEMORRHAGE [None]
  - HAEMATEMESIS [None]
